FAERS Safety Report 6610312-9 (Version None)
Quarter: 2010Q1

REPORT INFORMATION
  Report Type: 
  Country: None (occurrence: None)
  Receive Date: 20100302
  Receipt Date: 20100218
  Transmission Date: 20100710
  Serious: Yes (Other)
  Sender: FDA-Public Use
  Company Number: PHHY2010JP03937

PATIENT
  Age: 80 Year
  Sex: Male

DRUGS (2)
  1. NEORAL [Suspect]
     Dosage: 150 MG DAILY
     Route: 048
     Dates: start: 20040101
  2. NEORAL [Suspect]
     Dosage: 50 MG DAILY
     Route: 048
     Dates: start: 20060101

REACTIONS (2)
  - BLOOD LACTATE DEHYDROGENASE INCREASED [None]
  - LIVER FUNCTION TEST ABNORMAL [None]
